FAERS Safety Report 9815183 (Version 1)
Quarter: 2014Q1

REPORT INFORMATION
  Report Type: Spontaneous
  Country: US (occurrence: US)
  Receive Date: 20140114
  Receipt Date: 20140114
  Transmission Date: 20141002
  Serious: No
  Sender: FDA-Public Use
  Company Number: US-BIOGENIDEC-2014BI003565

PATIENT
  Sex: Female

DRUGS (5)
  1. TYSABRI [Suspect]
     Indication: MULTIPLE SCLEROSIS
     Route: 042
     Dates: start: 20121126, end: 20130520
  2. TYSABRI [Suspect]
     Indication: MULTIPLE SCLEROSIS
     Route: 042
     Dates: start: 20071024, end: 20120619
  3. AVONEX [Concomitant]
     Indication: MULTIPLE SCLEROSIS
  4. COPAXONE [Concomitant]
  5. BETASERON [Concomitant]

REACTIONS (5)
  - Temperature intolerance [Unknown]
  - Erythema [Unknown]
  - Device occlusion [Unknown]
  - Hypertension [Unknown]
  - Drug ineffective [Unknown]
